FAERS Safety Report 10044366 (Version 1)
Quarter: 2014Q1

REPORT INFORMATION
  Report Type: Spontaneous
  Country: US (occurrence: CA)
  Receive Date: 20140328
  Receipt Date: 20140328
  Transmission Date: 20141002
  Serious: Yes (Hospitalization)
  Sender: FDA-Public Use
  Company Number: CA-FRI-1000065951

PATIENT
  Age: 39 Year
  Sex: Female

DRUGS (4)
  1. SAPHRIS [Suspect]
     Indication: BIPOLAR DISORDER
     Route: 060
  2. CLONAZEPAM [Concomitant]
  3. LITHIUM [Concomitant]
  4. ZIPRASIDONE [Concomitant]

REACTIONS (4)
  - Unresponsive to stimuli [Recovered/Resolved]
  - Pulse abnormal [Recovered/Resolved]
  - Blood pressure abnormal [Recovered/Resolved]
  - Drug ineffective [Recovered/Resolved]
